FAERS Safety Report 21045364 (Version 1)
Quarter: 2022Q3

REPORT INFORMATION
  Report Type: Spontaneous
  Country: US (occurrence: US)
  Receive Date: 20220706
  Receipt Date: 20220706
  Transmission Date: 20221026
  Serious: No
  Sender: FDA-Public Use
  Company Number: US-BRISTOL-MYERS SQUIBB COMPANY-2022-054960

PATIENT
  Age: 69 Year
  Sex: Male
  Weight: 74.39 kg

DRUGS (23)
  1. POMALYST [Suspect]
     Active Substance: POMALIDOMIDE
     Indication: Plasma cell myeloma
     Dosage: ONCE DAILY ? 21 DAYS ,THEN 7 DAYS OFF.
     Route: 048
  2. LOPERAMIDE [Concomitant]
     Active Substance: LOPERAMIDE
  3. M DRYL [Concomitant]
     Dosage: TAKE 5 ML BY MOUTH SWISH AND SPIT OR SWALLOW FOUR TIMES DAILY AS NEEDED FOR MOUTH DISCOMFORT
  4. ACYCLOVIR [Concomitant]
     Active Substance: ACYCLOVIR
     Dosage: TAKE 1 TABLET BY MOUTH TWICE DAILY.
     Route: 048
  5. ALBUTEROL SULFATE [Concomitant]
     Active Substance: ALBUTEROL SULFATE
     Dosage: INHALE 2 PUFFS BY MOUTH EVERY 4 HOURS AS NEEDED.
  6. BENZONATATE [Concomitant]
     Active Substance: BENZONATATE
     Dosage: TALE 1 CAPSULE BY MOUTH 3 TIMES DAILY AS NEEDED.
     Route: 048
  7. BENZONATATE [Concomitant]
     Active Substance: BENZONATATE
     Dosage: TAKE 1 CAPSULE BY MOUTH BY 3 TIMES DAILY AS NEEDED FOR COUGH.
     Route: 048
  8. BUDESONIDE [Concomitant]
     Active Substance: BUDESONIDE
     Dosage: 160/4.5 MCG. INHALE 2 PUFFS BY MOUTH TWICE DAILY RINSE MOUTH AFTER USE .
     Route: 048
  9. CEFDINIR;LACTOBACILLUS NOS [Concomitant]
     Dosage: TAKE 1 CAPSULE BY MOUTH TWICE DAILY
  10. LOTRIMIN [Concomitant]
     Active Substance: CLOTRIMAZOLE
     Dosage: DISSOLVE 1  LOZENGE BY MOUTH 5 TIMES DAILY FOR 14 DAYS.
  11. DEXASONE [DEXAMETHASONE] [Concomitant]
     Dosage: TAKE 10 TABLET BY MOUTH ONCE EVERY WEEK ON THE SAME DAY IN THE MORNING.
  12. DULERA [Concomitant]
     Active Substance: FORMOTEROL FUMARATE DIHYDRATE\MOMETASONE FUROATE
     Dosage: 200-5 MCG ORAL INHALER120 INH.?INHALE 2 PUFFS BY MOUTH DAILY.
  13. APRESOLINE HYDROCHLORIDE [Concomitant]
     Active Substance: HYDRALAZINE HYDROCHLORIDE
     Dosage: TAKE 1 TABLET BY MOUTH EVERY DAY.
  14. ALPHOSYL HYDROCORTISONE [Concomitant]
     Dosage: APPLY EXTERNALLY TO AFFECTED AREA TWICE DAILY.
  15. NUCYNTA [Concomitant]
     Active Substance: TAPENTADOL HYDROCHLORIDE
     Dosage: TAKE 1 TABLET BY MOUTH EVERY 6 TO 8 HOURS AS NEEDED.
     Route: 048
  16. MYCOSTAT [NYSTATIN] [Concomitant]
     Dosage: SHAKE LIQUID AND TAKE 5 ML BY MOUTH 4 TIMES DAILY WHILE AWAKE.
  17. PREDNISONE [Concomitant]
     Active Substance: PREDNISONE
     Dosage: TAKE 4 TABLETS DAILY ? 3 DAYS:3
  18. PREDNISONE [Concomitant]
     Active Substance: PREDNISONE
     Dosage: TAKE2 TABLET BY MOUTH EVERY DAY FOR 3 DAYS , THEN TAKE 1 TABLET BY MOUTH EVERY DAY FOR 3 DAYS.
  19. DICLOFENAC POTASSIUM [Concomitant]
     Active Substance: DICLOFENAC POTASSIUM
  20. MONTELUKAST ANTIBIOTICOS [Concomitant]
  21. OLMESARTAN [Concomitant]
     Active Substance: OLMESARTAN
  22. QUETIAPINE [Concomitant]
     Active Substance: QUETIAPINE
  23. SPIRIVA [Concomitant]
     Active Substance: TIOTROPIUM BROMIDE MONOHYDRATE

REACTIONS (1)
  - Fatigue [Unknown]

NARRATIVE: CASE EVENT DATE: 20220606
